FAERS Safety Report 12513738 (Version 2)
Quarter: 2016Q3

REPORT INFORMATION
  Report Type: Spontaneous
  Country: US (occurrence: US)
  Receive Date: 20160630
  Receipt Date: 20160819
  Transmission Date: 20161109
  Serious: Yes (Life-Threatening, Hospitalization)
  Sender: FDA-Public Use
  Company Number: US-JNJFOC-20160522643

PATIENT
  Age: 74 Year
  Sex: Male

DRUGS (4)
  1. XARELTO [Suspect]
     Active Substance: RIVAROXABAN
     Indication: CEREBROVASCULAR ACCIDENT PROPHYLAXIS
     Route: 048
     Dates: start: 20131024, end: 20140220
  2. XARELTO [Suspect]
     Active Substance: RIVAROXABAN
     Indication: ATRIAL FIBRILLATION
     Route: 048
     Dates: start: 20131024, end: 20140220
  3. ASPIRIN. [Suspect]
     Active Substance: ASPIRIN
     Indication: ATRIAL FIBRILLATION
     Route: 048
     Dates: end: 201402
  4. XARELTO [Suspect]
     Active Substance: RIVAROXABAN
     Indication: THROMBOSIS PROPHYLAXIS
     Route: 048
     Dates: start: 20131024, end: 20140220

REACTIONS (6)
  - Peritoneal haemorrhage [Recovering/Resolving]
  - Splenic haemorrhage [Recovering/Resolving]
  - Shock haemorrhagic [Recovered/Resolved]
  - Acute kidney injury [Recovering/Resolving]
  - Coagulopathy [Recovering/Resolving]
  - Transfusion-related acute lung injury [Recovering/Resolving]

NARRATIVE: CASE EVENT DATE: 20140220
